FAERS Safety Report 6674104-7 (Version None)
Quarter: 2010Q1

REPORT INFORMATION
  Report Type: 
  Country: None (occurrence: None)
  Receive Date: 20100329
  Receipt Date: 20091216
  Transmission Date: 20100710
  Serious: Yes (Hospitalization)
  Sender: FDA-Public Use
  Company Number: 2009313625

PATIENT
  Age: 19 Year
  Sex: Male
  Weight: 78 kg

DRUGS (2)
  1. GEODON [Suspect]
     Indication: BIPOLAR DISORDER
     Dosage: 160 MG, 1X/DAY
     Dates: start: 20091119, end: 20091215
  2. LAMICTAL [Concomitant]

REACTIONS (4)
  - ABDOMINAL DISCOMFORT [None]
  - DEHYDRATION [None]
  - HYPERHIDROSIS [None]
  - NAUSEA [None]
